FAERS Safety Report 21719220 (Version 1)
Quarter: 2022Q4

REPORT INFORMATION
  Report Type: Spontaneous
  Country: IT (occurrence: IT)
  Receive Date: 20221213
  Receipt Date: 20221213
  Transmission Date: 20230112
  Serious: Yes (Life-Threatening, Hospitalization, Other)
  Sender: FDA-Public Use
  Company Number: IT-ALKEM LABORATORIES LIMITED-IT-ALKEM-2022-13779

PATIENT
  Age: 15 Year
  Sex: Female
  Weight: 70 kg

DRUGS (2)
  1. ISONIAZID [Suspect]
     Active Substance: ISONIAZID
     Indication: Bone tuberculosis
     Dosage: 30 GRAM
     Route: 065
  2. RIFAMPIN [Suspect]
     Active Substance: RIFAMPIN
     Indication: Bone tuberculosis
     Dosage: 2400 MG OF RIFAMPIN (8 CAPSULES) SIX HOURS
     Route: 065

REACTIONS (9)
  - Bezoar [Unknown]
  - Overdose [Unknown]
  - Seizure [Unknown]
  - Sinus tachycardia [Unknown]
  - Vomiting [Unknown]
  - Blood creatine phosphokinase increased [Unknown]
  - Aspartate aminotransferase increased [Unknown]
  - Alanine aminotransferase increased [Unknown]
  - Toxicity to various agents [Recovering/Resolving]
